FAERS Safety Report 15440507 (Version 2)
Quarter: 2018Q4

REPORT INFORMATION
  Report Type: Report from Study
  Country: CR (occurrence: CR)
  Receive Date: 20180928
  Receipt Date: 20181213
  Transmission Date: 20190204
  Serious: Yes (Death, Life-Threatening, Hospitalization)
  Sender: FDA-Public Use
  Company Number: PHHY2018CR055531

PATIENT
  Age: 49 Year
  Sex: Female

DRUGS (2)
  1. CEPHALEXIN. [Suspect]
     Active Substance: CEPHALEXIN
     Indication: PRODUCT USED FOR UNKNOWN INDICATION
     Route: 065
  2. TASIGNA [Suspect]
     Active Substance: NILOTINIB
     Indication: CHRONIC MYELOID LEUKAEMIA
     Dosage: 2 DF, Q12H
     Route: 048

REACTIONS (16)
  - Platelet count decreased [Unknown]
  - Frequent bowel movements [Unknown]
  - Decreased immune responsiveness [Unknown]
  - Death [Fatal]
  - Seizure [Unknown]
  - Gastric dilatation [Unknown]
  - Burning sensation [Unknown]
  - Phlebitis [Unknown]
  - Pain [Unknown]
  - Fatigue [Unknown]
  - Malaise [Unknown]
  - Haemoglobin decreased [Unknown]
  - Acute myeloid leukaemia [Unknown]
  - Haemorrhoids [Unknown]
  - Immune system disorder [Unknown]
  - Drug ineffective [Unknown]

NARRATIVE: CASE EVENT DATE: 20180914
